FAERS Safety Report 22180444 (Version 1)
Quarter: 2023Q2

REPORT INFORMATION
  Report Type: Spontaneous
  Country: GB (occurrence: GB)
  Receive Date: 20230406
  Receipt Date: 20230406
  Transmission Date: 20230721
  Serious: Yes (Other)
  Sender: FDA-Public Use
  Company Number: None

PATIENT
  Age: 91 Year
  Sex: Male
  Weight: 75 kg

DRUGS (16)
  1. LANSOPRAZOLE [Suspect]
     Active Substance: LANSOPRAZOLE
     Indication: Product used for unknown indication
     Dosage: 30 MILLIGRAM, QD
     Route: 065
     Dates: start: 20221114
  2. ALLOPURINOL [Concomitant]
     Active Substance: ALLOPURINOL
     Indication: Gout
     Dosage: 1 DOSAGE FORM, QD (TO HELP PREVENT GOUT)
     Route: 065
     Dates: start: 20221117
  3. ATORVASTATIN [Concomitant]
     Active Substance: ATORVASTATIN
     Indication: Blood cholesterol increased
     Dosage: 1 DOSAGE FORM, QD (EVENING, TO LOWER CHOLESTEROL)
     Route: 065
     Dates: start: 20221117
  4. BISOPROLOL [Concomitant]
     Active Substance: BISOPROLOL
     Dosage: 1 DOSAGE FORM, QD
     Route: 065
     Dates: start: 20221117
  5. CANDESARTAN [Concomitant]
     Active Substance: CANDESARTAN
     Dosage: 1 DOSAGE FORM, QD
     Route: 065
     Dates: start: 20221117
  6. CETIRIZINE [Concomitant]
     Active Substance: CETIRIZINE HYDROCHLORIDE
     Indication: Rash pruritic
     Dosage: 1 DOSAGE FORM, QD (FOR ITCHY RASH OF THIGH AS REQUI)
     Route: 065
     Dates: start: 20230127, end: 20230226
  7. DERMOL [Concomitant]
     Active Substance: BENZALKONIUM CHLORIDE\CHLORHEXIDINE HYDROCHLORIDE\ISOPROPYL MYRISTATE\PARAFFIN
     Dosage: UNK (USE AS DIRECTED)
     Route: 065
     Dates: start: 20230116, end: 20230213
  8. CLOBETASOL [Concomitant]
     Active Substance: CLOBETASOL
     Dosage: UNK (APPLY 1-2 TIMES/DAY FOR 1 WEEK)
     Route: 065
     Dates: start: 20230127, end: 20230203
  9. FLUCLOXACILLIN [Concomitant]
     Active Substance: FLUCLOXACILLIN
     Dosage: 1 DOSAGE FORM, QID
     Route: 065
     Dates: start: 20230116, end: 20230123
  10. FUROSEMIDE [Concomitant]
     Active Substance: FUROSEMIDE
     Dosage: 1 DOSAGE FORM, BID (1 OM + 1 INTHE AFTERNOON)
     Route: 065
     Dates: start: 20221117
  11. NITROGLYCERIN [Concomitant]
     Active Substance: NITROGLYCERIN
     Dosage: UNK (SPRAY 1-2 DOSES UNDER TONGUE AS NEEDED, THEN CL)
     Route: 060
     Dates: start: 20221117
  12. HYDROCORTISONE [Concomitant]
     Active Substance: HYDROCORTISONE
     Dosage: UNK UNK, BID (APPLY TO AFFECTED AREA)
     Route: 065
     Dates: start: 20230123, end: 20230222
  13. LEVOTHYROXINE [Concomitant]
     Active Substance: LEVOTHYROXINE
     Dosage: 1 DOSAGE FORM, QD (MORNING)
     Route: 065
     Dates: start: 20221117
  14. MOMETASONE [Concomitant]
     Active Substance: MOMETASONE
     Dosage: UNK, BID (APPLY FOR 2 WEEKS)
     Route: 065
     Dates: start: 20230127, end: 20230210
  15. SPIRONOLACTONE [Concomitant]
     Active Substance: SPIRONOLACTONE
     Dosage: 1 DOSAGE FORM, 3XW
     Route: 065
     Dates: start: 20221117
  16. WARFARIN SODIUM [Concomitant]
     Active Substance: WARFARIN SODIUM
     Dosage: UNK (AS DIRECTED BY CLINIC)
     Route: 065
     Dates: start: 20221117

REACTIONS (2)
  - Swelling [Recovered/Resolved]
  - Diarrhoea [Recovered/Resolved]
